FAERS Safety Report 7354678-3 (Version None)
Quarter: 2011Q1

REPORT INFORMATION
  Report Type: 
  Country: None (occurrence: None)
  Receive Date: 20110316
  Receipt Date: 20110309
  Transmission Date: 20110831
  Serious: Yes (Other)
  Sender: FDA-Public Use
  Company Number: US-PFIZER INC-2011052860

PATIENT

DRUGS (1)
  1. DETROL LA [Suspect]

REACTIONS (1)
  - AMNESIA [None]
